FAERS Safety Report 12241232 (Version 1)
Quarter: 2016Q2

REPORT INFORMATION
  Report Type: Spontaneous
  Country: US (occurrence: None)
  Receive Date: 20160405
  Receipt Date: 20160405
  Transmission Date: 20160815
  Serious: No
  Sender: FDA-Public Use
  Company Number: None

PATIENT
  Sex: Female

DRUGS (1)
  1. XELJANZ [Suspect]
     Active Substance: TOFACITINIB CITRATE
     Indication: ARTHRITIS
     Dosage: 09/08/2015 TO 3/25/2016 **LAST SHIPMENT
     Route: 048
     Dates: start: 20150908, end: 20160325

REACTIONS (2)
  - Therapy cessation [None]
  - Adverse drug reaction [None]
